FAERS Safety Report 6775123-2 (Version None)
Quarter: 2010Q2

REPORT INFORMATION
  Report Type: 
  Country: None (occurrence: None)
  Receive Date: 20100617
  Receipt Date: 20100602
  Transmission Date: 20101027
  Serious: Yes (Hospitalization)
  Sender: FDA-Public Use
  Company Number: FR-NAPPMUNDI-GBR-2010-0006672

PATIENT
  Age: 46 Year
  Sex: Male
  Weight: 68 kg

DRUGS (2)
  1. OXYCODONE HCL [Suspect]
     Indication: CANCER PAIN
     Dosage: 60 MG, DAILY
     Route: 065
  2. OXYCONTIN [Suspect]
     Indication: CANCER PAIN
     Dosage: 200 MG, DAILY
     Route: 048

REACTIONS (8)
  - CONFUSIONAL STATE [None]
  - CONSTIPATION [None]
  - GASTROINTESTINAL MOTILITY DISORDER [None]
  - HALLUCINATION [None]
  - NAUSEA [None]
  - PAINFUL DEFAECATION [None]
  - SOMNOLENCE [None]
  - VOMITING [None]
